FAERS Safety Report 5658437-9 (Version None)
Quarter: 2008Q1

REPORT INFORMATION
  Report Type: 
  Country: None (occurrence: None)
  Receive Date: 20080310
  Receipt Date: 20070211
  Transmission Date: 20080703
  Serious: No
  Sender: FDA-Public Use
  Company Number: US-BAYER-200710481BCC

PATIENT
  Age: 59 Year
  Sex: Female
  Weight: 98 kg

DRUGS (6)
  1. ALEVE [Suspect]
     Indication: ARTHRALGIA
     Dosage: TOTAL DAILY DOSE: 880 MG  UNIT DOSE: 220 MG
     Route: 048
     Dates: start: 20070101
  2. ALEVE [Suspect]
     Dosage: TOTAL DAILY DOSE: 1320 MG  UNIT DOSE: 220 MG
     Route: 048
     Dates: start: 20070211
  3. DIOVAN [Concomitant]
  4. LOVASTATIN [Concomitant]
  5. ZOLOFT [Concomitant]
  6. VITAMINS [Concomitant]

REACTIONS (1)
  - NO ADVERSE EVENT [None]
